FAERS Safety Report 4600364-X (Version None)
Quarter: 2005Q1

REPORT INFORMATION
  Report Type: 
  Country: None (occurrence: None)
  Receive Date: 20050303
  Receipt Date: 20050209
  Transmission Date: 20050727
  Serious: Yes (Other)
  Sender: FDA-Public Use
  Company Number: USA041080796

PATIENT
  Age: 72 Year
  Sex: Female

DRUGS (1)
  1. FORTEO [Suspect]
     Indication: OSTEOPOROSIS
     Dosage: 20 UG/1 DAY
     Dates: start: 20030101

REACTIONS (7)
  - ASTHENIA [None]
  - DEAFNESS UNILATERAL [None]
  - EAR DISCOMFORT [None]
  - INNER EAR DISORDER [None]
  - NERVE INJURY [None]
  - SUDDEN HEARING LOSS [None]
  - VIRAL INFECTION [None]
